FAERS Safety Report 18385123 (Version 2)
Quarter: 2020Q4

REPORT INFORMATION
  Report Type: Report from Study
  Country: CA (occurrence: CA)
  Receive Date: 20201014
  Receipt Date: 20201106
  Transmission Date: 20210114
  Serious: Yes (Hospitalization)
  Sender: FDA-Public Use
  Company Number: CA-ROCHE-2689620

PATIENT

DRUGS (1)
  1. RITUXIMAB. [Suspect]
     Active Substance: RITUXIMAB
     Indication: B-CELL LYMPHOMA
     Dosage: RITUXIMAB 2*100MG/10ML CA VL, RITUXIMAB 1*500MG/50ML CA VL, RITUXIMAB 1*1400MG/11.7ML CA VL?1.5-6HRS
     Route: 042
     Dates: start: 20130417

REACTIONS (2)
  - Embolism [Recovered/Resolved]
  - Pyrexia [Recovered/Resolved]

NARRATIVE: CASE EVENT DATE: 20170414
